FAERS Safety Report 25284423 (Version 1)
Quarter: 2025Q2

REPORT INFORMATION
  Report Type: Spontaneous
  Country: US (occurrence: None)
  Receive Date: 20250508
  Receipt Date: 20250508
  Transmission Date: 20250716
  Serious: No
  Sender: FDA-CTU
  Company Number: None

PATIENT

DRUGS (1)
  1. FINGOLIMOD [Suspect]
     Active Substance: FINGOLIMOD

REACTIONS (9)
  - Crying [None]
  - Anger [None]
  - Multiple sclerosis relapse [None]
  - Decreased appetite [None]
  - Initial insomnia [None]
  - Asthenia [None]
  - Feeling abnormal [None]
  - Product dose omission in error [None]
  - Product use issue [None]
